FAERS Safety Report 8105566-6 (Version None)
Quarter: 2012Q1

REPORT INFORMATION
  Report Type: 
  Country: None (occurrence: None)
  Receive Date: 20120201
  Receipt Date: 20120119
  Transmission Date: 20120608
  Serious: Yes (Hospitalization)
  Sender: FDA-Public Use
  Company Number: DE-ROCHE-1006156

PATIENT
  Sex: Male
  Weight: 82 kg

DRUGS (12)
  1. ACTEMRA [Suspect]
     Route: 042
     Dates: start: 20110502
  2. ACTEMRA [Suspect]
     Indication: RHEUMATOID ARTHRITIS
     Route: 042
     Dates: start: 20100715
  3. RAMIPRIL [Concomitant]
     Indication: CORONARY ARTERY DISEASE
     Route: 048
  4. ACTEMRA [Suspect]
     Route: 042
     Dates: start: 20110530
  5. ACTEMRA [Suspect]
     Route: 042
     Dates: start: 20110628
  6. SIMVASTATIN [Concomitant]
     Indication: CORONARY ARTERY DISEASE
     Route: 048
  7. ACTEMRA [Suspect]
     Route: 042
     Dates: start: 20110802, end: 20110802
  8. METOPROLOL TARTRATE [Concomitant]
     Indication: CORONARY ARTERY DISEASE
     Route: 048
  9. CALCIUM SANDOZ [Concomitant]
     Indication: OSTEOPOROSIS
     Route: 048
     Dates: start: 20080101
  10. CALCILAC [Concomitant]
     Indication: RHEUMATOID ARTHRITIS
     Route: 048
     Dates: start: 20080101
  11. PREDNISOLONE [Concomitant]
     Indication: RHEUMATOID ARTHRITIS
     Route: 048
     Dates: start: 20080101
  12. PANTOPRAZOLE [Concomitant]
     Indication: PROPHYLAXIS AGAINST GASTROINTESTINAL ULCER
     Route: 048

REACTIONS (2)
  - ENTEROCOLITIS HAEMORRHAGIC [None]
  - COLITIS ULCERATIVE [None]
